FAERS Safety Report 24251625 (Version 1)
Quarter: 2024Q3

REPORT INFORMATION
  Report Type: Report from Study
  Country: US (occurrence: US)
  Receive Date: 20240827
  Receipt Date: 20240827
  Transmission Date: 20241017
  Serious: Yes (Other)
  Sender: ABBVIE
  Company Number: US-ABBVIE-5893451

PATIENT
  Sex: Male

DRUGS (1)
  1. VENCLEXTA [Suspect]
     Active Substance: VENETOCLAX
     Indication: Acute leukaemia
     Dosage: DOSE: TAKE 1 TABLET BY MOUTH DAILY (EVERY 24 HOURS. TAKE ON DAYS 3 THROUGH 7 OF?CHEMO CYCLE.)
     Route: 048

REACTIONS (2)
  - Hospice care [Unknown]
  - Off label use [Not Recovered/Not Resolved]
